FAERS Safety Report 4569020-0 (Version None)
Quarter: 2005Q1

REPORT INFORMATION
  Report Type: 
  Country: None (occurrence: None)
  Receive Date: 20050203
  Receipt Date: 20050127
  Transmission Date: 20050727
  Serious: Yes (Hospitalization, Disabling)
  Sender: FDA-Public Use
  Company Number: 200510885GDDC

PATIENT
  Age: 69 Year
  Sex: Female
  Weight: 87.5 kg

DRUGS (1)
  1. GAVISCON [Suspect]
     Indication: DYSPEPSIA
     Dosage: DOSE: UNK
     Route: 048
     Dates: start: 19970101

REACTIONS (2)
  - CONDITION AGGRAVATED [None]
  - GALLBLADDER DISORDER [None]
